FAERS Safety Report 10545022 (Version 3)
Quarter: 2015Q2

REPORT INFORMATION
  Report Type: Spontaneous
  Country: US (occurrence: US)
  Receive Date: 20141027
  Receipt Date: 20150611
  Transmission Date: 20150821
  Serious: Yes (Hospitalization, Other)
  Sender: FDA-Public Use
  Company Number: US-BAYER-2014-155969

PATIENT
  Age: 23 Year
  Sex: Female
  Weight: 80.27 kg

DRUGS (1)
  1. MIRENA [Suspect]
     Active Substance: LEVONORGESTREL
     Indication: CONTRACEPTION
     Dosage: 20 MCG/24HR, CONT
     Route: 015
     Dates: start: 20080401, end: 20090220

REACTIONS (19)
  - Scar [None]
  - Uterine perforation [None]
  - Pain [None]
  - Emotional distress [None]
  - Abortion spontaneous [None]
  - Fear of disease [None]
  - Stress [None]
  - Device issue [None]
  - Procedural pain [None]
  - Infertility female [None]
  - Injury [None]
  - Ectopic pregnancy with contraceptive device [None]
  - Pelvic organ injury [None]
  - Abdominal pain [None]
  - Female sexual dysfunction [None]
  - Off label use of device [None]
  - Depression [None]
  - Fear of death [None]
  - Fear [None]

NARRATIVE: CASE EVENT DATE: 20090220
